FAERS Safety Report 6422035-X (Version None)
Quarter: 2009Q4

REPORT INFORMATION
  Report Type: 
  Country: None (occurrence: None)
  Receive Date: 20091030
  Receipt Date: 20091020
  Transmission Date: 20100525
  Serious: Yes (Other)
  Sender: FDA-Public Use
  Company Number: US-ELI_LILLY_AND_COMPANY-US200910004976

PATIENT
  Sex: Female

DRUGS (2)
  1. FLUOXETINE HCL [Suspect]
     Indication: DEPRESSION
     Dosage: 60 MG, DAILY (1/D)
     Route: 065
     Dates: end: 20090901
  2. FLUOXETINE HCL [Suspect]
     Dosage: 60 MG, DAILY (1/D)
     Route: 065

REACTIONS (3)
  - GALLBLADDER OPERATION [None]
  - GASTRIC BANDING [None]
  - IRRITABLE BOWEL SYNDROME [None]
